FAERS Safety Report 4885235-6 (Version None)
Quarter: 2005Q4

REPORT INFORMATION
  Report Type: 
  Country: None (occurrence: None)
  Receive Date: 20051214
  Receipt Date: 20050516
  Transmission Date: 20060501
  Serious: Yes (Other)
  Sender: FDA-Public Use
  Company Number: 2005038111

PATIENT
  Age: 99 Year
  Sex: Female

DRUGS (2)
  1. NITROSTAT [Suspect]
     Indication: CHEST PAIN
     Dosage: 0.4 MG (0.4 MG, PRN), ORAL
     Route: 048
     Dates: start: 20050216
  2. NITROSTAT [Suspect]
     Dosage: 0.4 MG, (0.4 MG, PRN), ORAL
     Route: 048
     Dates: start: 20050201

REACTIONS (3)
  - DRUG INEFFECTIVE [None]
  - DYSGEUSIA [None]
  - PARAESTHESIA ORAL [None]
